FAERS Safety Report 7705540-5 (Version None)
Quarter: 2011Q3

REPORT INFORMATION
  Report Type: 
  Country: None (occurrence: None)
  Receive Date: 20110823
  Receipt Date: 20110823
  Transmission Date: 20111222
  Serious: No
  Sender: FDA-Public Use
  Company Number: None

PATIENT
  Age: 76 Year
  Sex: Male
  Weight: 108.8633 kg

DRUGS (1)
  1. VENLAFAXINE HYDROCHLORIDE [Suspect]
     Indication: DEPRESSION
     Dosage: 75MG DAILY P.O.
     Route: 048
     Dates: start: 20110415, end: 20110816

REACTIONS (2)
  - CONSTIPATION [None]
  - MEDICATION RESIDUE [None]
